FAERS Safety Report 7479874-6 (Version None)
Quarter: 2011Q2

REPORT INFORMATION
  Report Type: 
  Country: None (occurrence: None)
  Receive Date: 20110515
  Receipt Date: 20100410
  Transmission Date: 20111010
  Serious: No
  Sender: FDA-Public Use
  Company Number: US-NOVEN-ALL1-2010-02282

PATIENT

DRUGS (1)
  1. DAYTRANA [Suspect]
     Dosage: 10 MG, 1X/DAY:QD
     Route: 062
     Dates: start: 20100408

REACTIONS (8)
  - DECREASED APPETITE [None]
  - DYSPEPSIA [None]
  - DIZZINESS [None]
  - CONDITION AGGRAVATED [None]
  - VOMITING [None]
  - PSYCHOMOTOR HYPERACTIVITY [None]
  - LETHARGY [None]
  - ABNORMAL LOSS OF WEIGHT [None]
